FAERS Safety Report 23483920 (Version 2)
Quarter: 2024Q2

REPORT INFORMATION
  Report Type: Spontaneous
  Country: JP (occurrence: JP)
  Receive Date: 20240205
  Receipt Date: 20240402
  Transmission Date: 20240715
  Serious: Yes (Death, Other)
  Sender: FDA-Public Use
  Company Number: JP-GENMAB-2024-00277

PATIENT
  Age: 79 Year
  Sex: Female

DRUGS (7)
  1. EPKINLY [Suspect]
     Active Substance: EPCORITAMAB-BYSP
     Indication: Diffuse large B-cell lymphoma
     Dosage: 0.16 MILLIGRAM, SINGLE
     Route: 058
     Dates: start: 20240118, end: 20240118
  2. EPKINLY [Suspect]
     Active Substance: EPCORITAMAB-BYSP
     Dosage: 0.8 MILLIGRAM, SINGLE
     Route: 058
     Dates: start: 20240125, end: 20240125
  3. EPKINLY [Suspect]
     Active Substance: EPCORITAMAB-BYSP
     Dosage: 48 MILLIGRAM
     Route: 058
     Dates: start: 202402, end: 202402
  4. GEMCITABINE [Concomitant]
     Active Substance: GEMCITABINE
     Dosage: 1000 MILLIGRAM/SQ. METER, MONOTHERAPY PRIOR TO EPKINLY SUBCUTANEOUS INJECTION
     Route: 065
     Dates: start: 202401, end: 202401
  5. PREDNISOLONE [Concomitant]
     Active Substance: PREDNISOLONE
     Dosage: 100 MILLIGRAM, THE TIME PATIENT RECEIVED 0.16 MG OF EPKINLY SUBCUTANEOUS INJECTION
     Route: 048
     Dates: start: 202401, end: 202401
  6. PREDNISOLONE [Concomitant]
     Active Substance: PREDNISOLONE
     Dosage: 100 MILLIGRAM, THE TIME PATIENT RECEIVED 0.8 MG OF EPKINLY SUBCUTANEOUS INJECTION
     Route: 048
     Dates: start: 202401, end: 202401
  7. PREDNISOLONE [Concomitant]
     Active Substance: PREDNISOLONE
     Dosage: 100 MILLIGRAM, THE TIME PATIENT RECEIVED 48 MG OF EPKINLY SUBCUTANEOUS INJECTION
     Route: 048
     Dates: start: 202401, end: 202402

REACTIONS (3)
  - Diffuse large B-cell lymphoma [Fatal]
  - Inappropriate antidiuretic hormone secretion [Unknown]
  - Immune effector cell-associated neurotoxicity syndrome [Unknown]

NARRATIVE: CASE EVENT DATE: 20240101
